FAERS Safety Report 18888523 (Version 1)
Quarter: 2021Q1

REPORT INFORMATION
  Report Type: Spontaneous
  Country: US (occurrence: US)
  Receive Date: 20210212
  Receipt Date: 20210212
  Transmission Date: 20210420
  Serious: Yes (Other)
  Sender: FDA-Public Use
  Company Number: US-ELI_LILLY_AND_COMPANY-US202102002133

PATIENT
  Sex: Female

DRUGS (3)
  1. BASAGLAR [Suspect]
     Active Substance: INSULIN GLARGINE
     Indication: PRODUCT USED FOR UNKNOWN INDICATION
     Dosage: 30 U, TID (MORNING, LUNCH AND AT BED TIME)
     Route: 065
     Dates: start: 2019
  2. BASAGLAR [Suspect]
     Active Substance: INSULIN GLARGINE
     Dosage: 30 U, TID (MORNING AND AT BED TIME)
     Route: 065
  3. NOVOLOG [Concomitant]
     Active Substance: INSULIN ASPART
     Indication: PRODUCT USED FOR UNKNOWN INDICATION
     Dosage: 12 U, TID

REACTIONS (8)
  - Inappropriate schedule of product administration [Unknown]
  - Depression [Unknown]
  - Gait disturbance [Unknown]
  - Sciatica [Unknown]
  - Pain [Recovering/Resolving]
  - Injection site nodule [Unknown]
  - Incorrect product administration duration [Unknown]
  - Neuropathy peripheral [Not Recovered/Not Resolved]
